FAERS Safety Report 9535782 (Version 1)
Quarter: 2013Q3

REPORT INFORMATION
  Report Type: Spontaneous
  Country: CA (occurrence: CA)
  Receive Date: 20130919
  Receipt Date: 20130919
  Transmission Date: 20140515
  Serious: Yes (Other)
  Sender: FDA-Public Use
  Company Number: CA-JNJFOC-20130903209

PATIENT
  Sex: Male

DRUGS (2)
  1. TYLENOL ARTHRITIS PAIN [Suspect]
     Route: 048
  2. TYLENOL ARTHRITIS PAIN [Suspect]
     Indication: PAIN
     Dosage: AT NIGHT BEFORE BEDTIME
     Route: 048

REACTIONS (1)
  - Blood glucose increased [Recovered/Resolved]
